FAERS Safety Report 6444597-9 (Version None)
Quarter: 2009Q4

REPORT INFORMATION
  Report Type: 
  Country: None (occurrence: None)
  Receive Date: 20091117
  Receipt Date: 20091117
  Transmission Date: 20100525
  Serious: Yes (Life-Threatening, Hospitalization, Disabling)
  Sender: FDA-Public Use
  Company Number: None

PATIENT
  Age: 47 Year
  Sex: Female
  Weight: 86.1834 kg

DRUGS (4)
  1. CYMBALTA [Suspect]
     Indication: BULIMIA NERVOSA
     Dosage: 60MG 1XA DAY PO
     Route: 048
     Dates: start: 20090325, end: 20090515
  2. CYMBALTA [Suspect]
     Indication: DEPRESSION
     Dosage: 60MG 1XA DAY PO
     Route: 048
     Dates: start: 20090325, end: 20090515
  3. CYMBALTA [Suspect]
     Indication: INTENTIONAL SELF-INJURY
     Dosage: 60MG 1XA DAY PO
     Route: 048
     Dates: start: 20090325, end: 20090515
  4. CYMBALTA [Suspect]
     Indication: POST-TRAUMATIC STRESS DISORDER
     Dosage: 60MG 1XA DAY PO
     Route: 048
     Dates: start: 20090325, end: 20090515

REACTIONS (4)
  - DEPRESSION [None]
  - DRUG INEFFECTIVE [None]
  - INSOMNIA [None]
  - SUICIDE ATTEMPT [None]
